FAERS Safety Report 16782417 (Version 1)
Quarter: 2019Q3

REPORT INFORMATION
  Report Type: Report from Study
  Country: CA (occurrence: CA)
  Receive Date: 20190906
  Receipt Date: 20190906
  Transmission Date: 20191005
  Serious: Yes (Other)
  Sender: FDA-Public Use
  Company Number: CA-HLSUS-2019-CA-000921

PATIENT
  Age: 78 Year
  Sex: Male

DRUGS (4)
  1. CLOZARIL [Suspect]
     Active Substance: CLOZAPINE
     Route: 048
     Dates: start: 20190718, end: 20190730
  2. BUPROPION XL [Concomitant]
     Active Substance: BUPROPION
     Dosage: EVERY MORNING
  3. CLONAZEPAM. [Concomitant]
     Active Substance: CLONAZEPAM
     Dosage: EVERY NIGHT AT BED TIME
  4. VALPROIC ACID. [Concomitant]
     Active Substance: VALPROIC ACID
     Dosage: THRICE IN A DAY

REACTIONS (6)
  - White blood cell count decreased [Unknown]
  - Neutropenia [Unknown]
  - Sedation [Recovered/Resolved]
  - Salivary hypersecretion [Recovered/Resolved]
  - Upper respiratory tract infection [Unknown]
  - Neutrophil count decreased [Recovered/Resolved]

NARRATIVE: CASE EVENT DATE: 201908
